FAERS Safety Report 22144768 (Version 3)
Quarter: 2023Q2

REPORT INFORMATION
  Report Type: Spontaneous
  Country: MX (occurrence: MX)
  Receive Date: 20230328
  Receipt Date: 20230405
  Transmission Date: 20230722
  Serious: Yes (Other)
  Sender: FDA-Public Use
  Company Number: MX-UCBSA-2023012990

PATIENT
  Sex: Female

DRUGS (4)
  1. KEPPRA [Suspect]
     Active Substance: LEVETIRACETAM
     Indication: Partial seizures
     Dosage: 500 MILLIGRAM, 2X/DAY (BID)
     Dates: start: 20230111
  2. KEPPRA [Suspect]
     Active Substance: LEVETIRACETAM
     Dosage: 1 GRAM, ONCE DAILY (QD)
  3. KEPPRA [Suspect]
     Active Substance: LEVETIRACETAM
     Dosage: 3 GRAM PER DAY
     Dates: start: 20230307, end: 20230310
  4. KEPPRA [Suspect]
     Active Substance: LEVETIRACETAM
     Dosage: 4 GRAM PER DAY
     Route: 048
     Dates: start: 20230310

REACTIONS (4)
  - Generalised tonic-clonic seizure [Recovered/Resolved]
  - Headache [Recovered/Resolved]
  - Myalgia [Recovered/Resolved]
  - Off label use [Unknown]

NARRATIVE: CASE EVENT DATE: 20230214
